FAERS Safety Report 12081702 (Version 1)
Quarter: 2016Q1

REPORT INFORMATION
  Report Type: Spontaneous
  Country: US (occurrence: US)
  Receive Date: 20160216
  Receipt Date: 20160216
  Transmission Date: 20160526
  Serious: No
  Sender: FDA-Public Use
  Company Number: US-PERRIGO-15US007119

PATIENT
  Age: 4 Year
  Sex: Male
  Weight: 21.77 kg

DRUGS (1)
  1. IBUPROFEN. [Suspect]
     Active Substance: IBUPROFEN
     Indication: PAIN
     Dosage: 100 MG, SINGLE
     Route: 048
     Dates: start: 201507, end: 201507

REACTIONS (3)
  - Diarrhoea [Recovered/Resolved]
  - Underdose [Recovered/Resolved]
  - Abdominal discomfort [Recovered/Resolved]

NARRATIVE: CASE EVENT DATE: 201507
